FAERS Safety Report 8834206 (Version 2)
Quarter: 2013Q2

REPORT INFORMATION
  Report Type: Report from Study
  Country: US (occurrence: US)
  Receive Date: 20121010
  Receipt Date: 20130621
  Transmission Date: 20140414
  Serious: Yes (Hospitalization)
  Sender: FDA-Public Use
  Company Number: US-US-EMD SERONO, INC.-7165433

PATIENT
  Sex: Female
  Weight: 91 kg

DRUGS (1)
  1. REBIF [Suspect]
     Indication: MULTIPLE SCLEROSIS
     Route: 058
     Dates: start: 20080305

REACTIONS (12)
  - Dysstasia [Recovering/Resolving]
  - Fall [Recovering/Resolving]
  - Multiple sclerosis relapse [Recovering/Resolving]
  - Blood cholesterol abnormal [Unknown]
  - Weight increased [Recovering/Resolving]
  - Aphasia [Not Recovered/Not Resolved]
  - Fatigue [Unknown]
  - Injection site pain [Not Recovered/Not Resolved]
  - Thyroid disorder [Unknown]
  - Rash pustular [Unknown]
  - Chills [Unknown]
  - Injection site erythema [Not Recovered/Not Resolved]
